FAERS Safety Report 5093215-3 (Version None)
Quarter: 2006Q3

REPORT INFORMATION
  Report Type: 
  Country: None (occurrence: None)
  Receive Date: 20060829
  Receipt Date: 20060829
  Transmission Date: 20061208
  Serious: Yes (Hospitalization)
  Sender: FDA-Public Use
  Company Number: None

PATIENT
  Age: 81 Year
  Sex: Male
  Weight: 78.2 kg

DRUGS (2)
  1. NPH INSULIN [Suspect]
     Indication: DIABETES MELLITUS
     Dosage: 11 UNITS BID
     Dates: start: 20050602
  2. NOVOLOG [Suspect]
     Indication: DIABETES MELLITUS
     Dosage: 6 UNITS QAM
     Dates: start: 20041007

REACTIONS (3)
  - ACCIDENT [None]
  - HYPOGLYCAEMIA [None]
  - LOSS OF CONSCIOUSNESS [None]
